FAERS Safety Report 23294469 (Version 1)
Quarter: 2023Q4

REPORT INFORMATION
  Report Type: Spontaneous
  Country: US (occurrence: US)
  Receive Date: 20231213
  Receipt Date: 20231213
  Transmission Date: 20240109
  Serious: No
  Sender: FDA-Public Use
  Company Number: US-PFIZER INC-PV202300199546

PATIENT
  Age: 74 Year
  Sex: Female
  Weight: 119.7 kg

DRUGS (4)
  1. IBRANCE [Suspect]
     Active Substance: PALBOCICLIB
     Indication: Breast cancer female
     Dosage: TAKE 1 CAPSULE BY MOUTH FOR 21 DAYS ON, FOLLOWED BY 7 DAYS OFF, REPEAT
     Route: 048
     Dates: start: 20201012
  2. PALBOCICLIB [Suspect]
     Active Substance: PALBOCICLIB
     Indication: Breast cancer female
     Dosage: TAKE 1 TABLET BY MOUTH DAILY FOR 21 DAYS ON, FOLLOWED BY 7 DAYS OFF. REPEAT EVERY 28 DAYS
     Route: 048
     Dates: start: 2022, end: 2022
  3. LETROZOLE [Concomitant]
     Active Substance: LETROZOLE
     Indication: Breast cancer metastatic
     Dosage: UNK
     Dates: start: 20201012
  4. XGEVA [Concomitant]
     Active Substance: DENOSUMAB
     Indication: Breast cancer metastatic
     Dosage: UNK, MONTHLY

REACTIONS (1)
  - Neoplasm progression [Unknown]

NARRATIVE: CASE EVENT DATE: 20231205
